FAERS Safety Report 6848875-0 (Version None)
Quarter: 2010Q3

REPORT INFORMATION
  Report Type: 
  Country: None (occurrence: None)
  Receive Date: 20100716
  Receipt Date: 20071120
  Transmission Date: 20110219
  Serious: Yes (Other)
  Sender: FDA-Public Use
  Company Number: US-PFIZER INC-2007076456

PATIENT
  Sex: Male
  Weight: 141.1 kg

DRUGS (10)
  1. CHANTIX [Suspect]
     Indication: EX-TOBACCO USER
     Dates: start: 20070727
  2. LOVASTATIN [Concomitant]
  3. TENORETIC 100 [Concomitant]
  4. PLAVIX [Concomitant]
  5. ACETYLSALICYLIC ACID [Concomitant]
  6. OXITRIPTAN [Concomitant]
  7. LEVODOPA [Concomitant]
  8. LIPITOR [Concomitant]
  9. FLURAZEPAM [Concomitant]
  10. NIACIN [Concomitant]

REACTIONS (4)
  - FLATULENCE [None]
  - FOOD CRAVING [None]
  - INTENTIONAL DRUG MISUSE [None]
  - WEIGHT INCREASED [None]
